FAERS Safety Report 6889417-3 (Version None)
Quarter: 2010Q3

REPORT INFORMATION
  Report Type: 
  Country: None (occurrence: None)
  Receive Date: 20100730
  Receipt Date: 20080215
  Transmission Date: 20110219
  Serious: No
  Sender: FDA-Public Use
  Company Number: US-PFIZER INC-2008005400

PATIENT
  Sex: Female

DRUGS (1)
  1. LIPITOR [Suspect]

REACTIONS (8)
  - BACK DISORDER [None]
  - BLOOD CHOLESTEROL INCREASED [None]
  - BONE PAIN [None]
  - FATIGUE [None]
  - GASTRIC DISORDER [None]
  - MALAISE [None]
  - PAIN [None]
  - UNEVALUABLE EVENT [None]
